FAERS Safety Report 8397497-1 (Version None)
Quarter: 2012Q2

REPORT INFORMATION
  Report Type: 
  Country: None (occurrence: None)
  Receive Date: 20120529
  Receipt Date: 20120529
  Transmission Date: 20120825
  Serious: No
  Sender: FDA-Public Use
  Company Number: None

PATIENT
  Sex: Male

DRUGS (1)
  1. BARACLUDE [Suspect]
     Dosage: 0.5MG DAILY ORAL
     Route: 048
     Dates: start: 20120228, end: 20120524

REACTIONS (2)
  - THERAPEUTIC RESPONSE UNEXPECTED [None]
  - HAIR GROWTH ABNORMAL [None]
